FAERS Safety Report 11909294 (Version 2)
Quarter: 2016Q3

REPORT INFORMATION
  Report Type: Spontaneous
  Country: US (occurrence: US)
  Receive Date: 20160112
  Receipt Date: 20160906
  Transmission Date: 20161109
  Serious: Yes (Other)
  Sender: FDA-Public Use
  Company Number: US-TEVA-603306USA

PATIENT
  Age: 29 Year
  Sex: Female

DRUGS (9)
  1. CALCIUM CITRATE [Concomitant]
     Active Substance: CALCIUM CITRATE
  2. GLUCOSAMINE [Concomitant]
     Active Substance: GLUCOSAMINE
  3. MINESTRIN [Concomitant]
     Active Substance: ETHINYL ESTRADIOL\NORETHINDRONE ACETATE
  4. ZECUITY [Suspect]
     Active Substance: SUMATRIPTAN SUCCINATE
     Indication: MIGRAINE
     Route: 062
     Dates: start: 20151015
  5. BIOTIN [Concomitant]
     Active Substance: BIOTIN
  6. VITAMIN B12 [Concomitant]
     Active Substance: CYANOCOBALAMIN
  7. WOMEN^S ONE A DAY [Concomitant]
  8. VITAMIN D3 [Concomitant]
     Active Substance: CHOLECALCIFEROL
  9. IRON [Concomitant]
     Active Substance: IRON

REACTIONS (18)
  - Drug effect incomplete [Recovered/Resolved]
  - Application site pruritus [Recovered/Resolved]
  - Application site pain [Recovered/Resolved]
  - Discomfort [Recovered/Resolved]
  - Application site erythema [Recovered/Resolved]
  - Application site papules [Recovered/Resolved]
  - Application site erosion [Recovered/Resolved]
  - Application site warmth [Recovered/Resolved]
  - Product leakage [Unknown]
  - Application site rash [Recovered/Resolved]
  - Device battery issue [Unknown]
  - Application site burn [Recovered/Resolved]
  - Application site exfoliation [Recovered/Resolved]
  - Incorrect drug administration duration [Unknown]
  - Application site paraesthesia [Recovered/Resolved]
  - Application site discolouration [Recovered/Resolved]
  - Application site irritation [Recovered/Resolved]
  - Drug ineffective [Unknown]

NARRATIVE: CASE EVENT DATE: 20151015
